FAERS Safety Report 19283742 (Version 5)
Quarter: 2021Q3

REPORT INFORMATION
  Report Type: Spontaneous
  Country: JP (occurrence: JP)
  Receive Date: 20210521
  Receipt Date: 20210723
  Transmission Date: 20211014
  Serious: Yes (Hospitalization, Other)
  Sender: FDA-Public Use
  Company Number: JP-ASTELLAS-2021JP006691

PATIENT
  Age: 64 Year
  Sex: Male

DRUGS (18)
  1. AMLODIPINE [Concomitant]
     Active Substance: AMLODIPINE BESYLATE
     Indication: HYPERTENSION
     Route: 065
     Dates: start: 20210306
  2. QUETIAPINE. [Concomitant]
     Active Substance: QUETIAPINE
     Indication: INSOMNIA
     Route: 048
     Dates: start: 20210513
  3. FLIVAS [Concomitant]
     Active Substance: NAFTOPIDIL
     Indication: BENIGN PROSTATIC HYPERPLASIA
     Route: 048
     Dates: start: 20210116, end: 20210306
  4. BELSOMRA [Concomitant]
     Active Substance: SUVOREXANT
     Indication: INSOMNIA
     Route: 048
     Dates: start: 20210513
  5. XTANDI [Suspect]
     Active Substance: ENZALUTAMIDE
     Indication: HORMONE-REFRACTORY PROSTATE CANCER
     Route: 048
     Dates: start: 20210220
  6. FENTOS [Suspect]
     Active Substance: FENTANYL
     Route: 065
     Dates: start: 20210520
  7. CERNILTON [Concomitant]
     Active Substance: HERBALS
     Indication: PERINEAL PAIN
     Route: 048
     Dates: start: 20201003, end: 20210405
  8. XTANDI [Suspect]
     Active Substance: ENZALUTAMIDE
     Route: 048
     Dates: start: 20210419, end: 20210511
  9. HOCHUEKKITO [Concomitant]
     Active Substance: HERBALS
     Indication: MALAISE
     Route: 048
     Dates: start: 20210306, end: 20210513
  10. REBAMIPIDE [Concomitant]
     Active Substance: REBAMIPIDE
     Indication: BACK PAIN
     Dosage: 100 MG, WHEN THE PATIENT HAD PAIN
     Route: 048
     Dates: start: 20210419
  11. SYMPROIC [Concomitant]
     Active Substance: NALDEMEDINE
     Indication: CONSTIPATION
     Dosage: 0.2 MG, ONCE DAILY
     Route: 048
     Dates: start: 20210512
  12. TRAMAL [Suspect]
     Active Substance: TRAMADOL
     Indication: BACK PAIN
     Route: 048
     Dates: start: 20210506, end: 20210511
  13. LOXONIN [Concomitant]
     Active Substance: LOXOPROFEN SODIUM
     Indication: BACK PAIN
     Dosage: 60 MG, WHEN THE PATIENT HAD PAIN
     Route: 048
     Dates: start: 20210419
  14. NOVAMIN [Concomitant]
     Indication: NAUSEA
     Route: 048
     Dates: start: 20210506, end: 20210511
  15. XTANDI [Suspect]
     Active Substance: ENZALUTAMIDE
     Dosage: 160 MG, ONCE DAILY, AFTER DINNER
     Route: 048
     Dates: start: 20210225, end: 20210419
  16. CALONAL [Concomitant]
     Active Substance: ACETAMINOPHEN
     Indication: BACK PAIN
     Dosage: 600 MG, WHEN THE PATIENT HAD PAIN
     Route: 048
     Dates: start: 20210220, end: 20210419
  17. FENTOS [Suspect]
     Active Substance: FENTANYL
     Indication: BACK PAIN
     Dosage: 0.5 MG, ONCE DAILY
     Route: 065
     Dates: start: 20210511
  18. LUNESTA [Concomitant]
     Active Substance: ESZOPICLONE
     Indication: INSOMNIA
     Route: 048
     Dates: start: 20210220

REACTIONS (12)
  - Insomnia [Not Recovered/Not Resolved]
  - Metastases to liver [Unknown]
  - Constipation [Not Recovered/Not Resolved]
  - Hepatic function abnormal [Recovered/Resolved]
  - Hypertension [Recovering/Resolving]
  - Back pain [Recovering/Resolving]
  - Malaise [Not Recovered/Not Resolved]
  - Decreased appetite [Not Recovered/Not Resolved]
  - Metastases to bone [Not Recovered/Not Resolved]
  - Nausea [Not Recovered/Not Resolved]
  - Prostate cancer [Unknown]
  - Metastases to lymph nodes [Not Recovered/Not Resolved]

NARRATIVE: CASE EVENT DATE: 20210220
